FAERS Safety Report 10385094 (Version 1)
Quarter: 2014Q3

REPORT INFORMATION
  Report Type: Spontaneous
  Country: JP (occurrence: JP)
  Receive Date: 20140814
  Receipt Date: 20140814
  Transmission Date: 20150326
  Serious: Yes (Other)
  Sender: FDA-Public Use
  Company Number: PHHY2014JP098932

PATIENT
  Age: 61 Year
  Sex: Female

DRUGS (3)
  1. TASIGNA [Suspect]
     Active Substance: NILOTINIB
     Dosage: 600 MG, DAILY
  2. GLIVEC [Suspect]
     Active Substance: IMATINIB MESYLATE
     Dosage: 400 MG, UNK
  3. DASATINIB [Suspect]
     Active Substance: DASATINIB
     Dosage: 100 MG, UNK

REACTIONS (4)
  - Sepsis [Unknown]
  - Rash [Unknown]
  - Pleural effusion [Unknown]
  - Liver disorder [Unknown]
